FAERS Safety Report 8145898-9 (Version None)
Quarter: 2012Q1

REPORT INFORMATION
  Report Type: 
  Country: None (occurrence: None)
  Receive Date: 20120217
  Receipt Date: 20110621
  Transmission Date: 20120608
  Serious: No
  Sender: FDA-Public Use
  Company Number: US-ABBOTT-11P-163-0734224-00

PATIENT
  Sex: Female
  Weight: 90.8 kg

DRUGS (3)
  1. TEKTURNA [Concomitant]
     Indication: PRODUCT USED FOR UNKNOWN INDICATION
  2. ASPIRIN [Concomitant]
     Indication: PRODUCT USED FOR UNKNOWN INDICATION
  3. SIMCOR [Suspect]
     Indication: BLOOD CHOLESTEROL INCREASED
     Dosage: 500/20MG AT BEDTIME
     Dates: start: 20110421

REACTIONS (4)
  - FLUSHING [None]
  - SKIN BURNING SENSATION [None]
  - PARAESTHESIA [None]
  - ERYTHEMA [None]
